FAERS Safety Report 7714936-7 (Version None)
Quarter: 2011Q3

REPORT INFORMATION
  Report Type: 
  Country: None (occurrence: None)
  Receive Date: 20110829
  Receipt Date: 20110222
  Transmission Date: 20111222
  Serious: No
  Sender: FDA-Public Use
  Company Number: US-GLAXOSMITHKLINE-A0914897A

PATIENT
  Sex: Female

DRUGS (7)
  1. NEURONTIN [Concomitant]
  2. TRAMADOL HCL [Concomitant]
  3. VALTREX [Suspect]
     Indication: GENITAL HERPES
     Dosage: 1G PER DAY
     Route: 048
  4. PAIN MEDICATIONS [Concomitant]
  5. DARVOCET [Concomitant]
  6. ZOVIRAX [Suspect]
     Indication: GENITAL HERPES
     Dosage: 200MG TWICE PER DAY
     Route: 048
     Dates: end: 19940101
  7. LORTAB [Concomitant]

REACTIONS (4)
  - PAIN [None]
  - HERPES SIMPLEX [None]
  - SKIN LESION [None]
  - HERPES VIRUS INFECTION [None]
